FAERS Safety Report 8261382-6 (Version None)
Quarter: 2012Q2

REPORT INFORMATION
  Report Type: 
  Country: None (occurrence: None)
  Receive Date: 20120405
  Receipt Date: 20120402
  Transmission Date: 20120825
  Serious: Yes (Hospitalization, Other)
  Sender: FDA-Public Use
  Company Number: US-PFIZER INC-2011200475

PATIENT
  Sex: Male

DRUGS (1)
  1. CHANTIX [Suspect]
     Dosage: 1 MG, UNK
     Dates: start: 20110101, end: 20110101

REACTIONS (8)
  - DISORIENTATION [None]
  - FEELING ABNORMAL [None]
  - HYPERTENSIVE CRISIS [None]
  - NIGHTMARE [None]
  - DEPRESSION [None]
  - FEAR [None]
  - HALLUCINATION [None]
  - SLEEP DISORDER [None]
